FAERS Safety Report 8125264-2 (Version None)
Quarter: 2012Q1

REPORT INFORMATION
  Report Type: 
  Country: None (occurrence: None)
  Receive Date: 20120209
  Receipt Date: 20120201
  Transmission Date: 20120608
  Serious: Yes (Hospitalization)
  Sender: FDA-Public Use
  Company Number: US-BAYER-2011-049259

PATIENT
  Age: 25 Year
  Sex: Female
  Weight: 58 kg

DRUGS (5)
  1. DROSPIRENONE AND ETHINYL ESTRADIOL [Suspect]
     Indication: DYSMENORRHOEA
  2. IBUPROFEN [Concomitant]
     Indication: ARTHROSCOPY
  3. DROSPIRENONE AND ETHINYL ESTRADIOL [Suspect]
     Indication: CONTRACEPTION
     Dosage: UNK
     Dates: start: 20080726, end: 20090602
  4. AXERT [Concomitant]
     Indication: MIGRAINE
     Dosage: 6.25 MG, UNK
     Route: 048
     Dates: start: 20060522, end: 20090922
  5. ONDANSETRON HCL [Concomitant]
     Indication: ARTHROSCOPY

REACTIONS (16)
  - ANXIETY [None]
  - DIZZINESS [None]
  - TENDERNESS [None]
  - SKIN MASS [None]
  - MENTAL DISORDER [None]
  - DEEP VEIN THROMBOSIS [None]
  - INJURY [None]
  - PAIN [None]
  - GENERAL PHYSICAL HEALTH DETERIORATION [None]
  - PULMONARY EMBOLISM [None]
  - OEDEMA PERIPHERAL [None]
  - DYSPNOEA [None]
  - EMOTIONAL DISTRESS [None]
  - FEAR [None]
  - FEAR OF DEATH [None]
  - PAIN IN EXTREMITY [None]
